FAERS Safety Report 22233286 (Version 1)
Quarter: 2023Q2

REPORT INFORMATION
  Report Type: Spontaneous
  Country: US (occurrence: None)
  Receive Date: 20230418
  Receipt Date: 20230418
  Transmission Date: 20230721
  Serious: Yes (Other)
  Sender: FDA-Public Use
  Company Number: None

PATIENT
  Sex: Female

DRUGS (1)
  1. PHOSPHOLINE IODIDE [Suspect]
     Active Substance: ECHOTHIOPHATE IODIDE
     Indication: Glaucoma
     Dosage: PLACE 1 DROP I NTHE RIGHT EYE TWO TIMES DAILY
     Route: 047
     Dates: start: 20220804

REACTIONS (1)
  - Weight decreased [None]
